FAERS Safety Report 19126835 (Version 1)
Quarter: 2021Q2

REPORT INFORMATION
  Report Type: Spontaneous
  Country: US (occurrence: US)
  Receive Date: 20210413
  Receipt Date: 20210413
  Transmission Date: 20210717
  Serious: Yes (Hospitalization)
  Sender: FDA-Public Use
  Company Number: None

PATIENT
  Age: 74 Year
  Sex: Male
  Weight: 80.8 kg

DRUGS (2)
  1. PACLITAXEL. [Suspect]
     Active Substance: PACLITAXEL
     Dates: end: 20210323
  2. GEMCITABINE HYDROCHLORIDE. [Suspect]
     Active Substance: GEMCITABINE HYDROCHLORIDE
     Dates: end: 20210323

REACTIONS (9)
  - Cholecystitis acute [None]
  - Diarrhoea [None]
  - Acute kidney injury [None]
  - Hypovolaemic shock [None]
  - Rhabdomyolysis [None]
  - Asthenia [None]
  - Neutropenia [None]
  - Septic shock [None]
  - Hyponatraemia [None]

NARRATIVE: CASE EVENT DATE: 20210328
